FAERS Safety Report 25435015 (Version 2)
Quarter: 2025Q2

REPORT INFORMATION
  Report Type: Report from Study
  Country: AR (occurrence: AR)
  Receive Date: 20250613
  Receipt Date: 20250623
  Transmission Date: 20250716
  Serious: Yes (Hospitalization, Other)
  Sender: NOVARTIS
  Company Number: AR-002147023-NVSC2025AR089116

PATIENT
  Age: 74 Year
  Sex: Female

DRUGS (4)
  1. SCEMBLIX [Suspect]
     Active Substance: ASCIMINIB HYDROCHLORIDE
     Indication: Chronic myeloid leukaemia
     Dosage: 2 DOSAGE FORM, QD (2 OF 40 MG) STOPPED20 DAYS AGO 20
     Route: 048
     Dates: start: 20250407
  2. SCEMBLIX [Suspect]
     Active Substance: ASCIMINIB HYDROCHLORIDE
     Dosage: 40 MG, Q12H
     Route: 048
  3. SCEMBLIX [Suspect]
     Active Substance: ASCIMINIB HYDROCHLORIDE
     Dosage: 20 MG, Q12H
     Route: 065
  4. ERYTHROPOIETIN [Concomitant]
     Active Substance: ERYTHROPOIETIN
     Indication: Product used for unknown indication
     Dosage: 1 DOSAGE FORM, QW
     Route: 065

REACTIONS (5)
  - Red blood cell count decreased [Recovered/Resolved]
  - Toxicity to various agents [Recovered/Resolved]
  - Malaise [Unknown]
  - Asthenia [Unknown]
  - Drug tolerance [Unknown]

NARRATIVE: CASE EVENT DATE: 20250401
